FAERS Safety Report 5643417-X (Version None)
Quarter: 2008Q1

REPORT INFORMATION
  Report Type: 
  Country: None (occurrence: None)
  Receive Date: 20080228
  Receipt Date: 20080218
  Transmission Date: 20080703
  Serious: Yes (Life-Threatening)
  Sender: FDA-Public Use
  Company Number: GB-ELI_LILLY_AND_COMPANY-GB200802004141

PATIENT
  Age: 70 Year
  Sex: Female

DRUGS (1)
  1. DULOXETINE HYDROCHLORIDE [Suspect]
     Indication: DIABETIC NEUROPATHY
     Dosage: UNK, UNKNOWN
     Route: 048
     Dates: start: 20011001, end: 20071101

REACTIONS (1)
  - VENTRICULAR TACHYCARDIA [None]
